FAERS Safety Report 21370125 (Version 2)
Quarter: 2022Q4

REPORT INFORMATION
  Report Type: Spontaneous
  Country: CA (occurrence: CA)
  Receive Date: 20220923
  Receipt Date: 20221025
  Transmission Date: 20230113
  Serious: Yes (Other)
  Sender: FDA-Public Use
  Company Number: CA-PFIZER INC-202201173001

PATIENT
  Age: 86 Year
  Sex: Male
  Weight: 68.4 kg

DRUGS (10)
  1. VYNDAQEL [Suspect]
     Active Substance: TAFAMIDIS MEGLUMINE
     Indication: Cardiac amyloidosis
     Dosage: 80 MG, 1X/DAY
     Route: 048
     Dates: start: 20210702, end: 2022
  2. VYNDAQEL [Suspect]
     Active Substance: TAFAMIDIS MEGLUMINE
     Indication: Cardiomyopathy
  3. VYNDAMAX [Suspect]
     Active Substance: TAFAMIDIS
     Indication: Cardiomyopathy
     Dosage: 61 MG, 1X/DAY
     Route: 048
     Dates: start: 2022
  4. LASIX [Concomitant]
     Active Substance: FUROSEMIDE
     Dosage: 20 MG
  5. BICALUTAMIDE [Concomitant]
     Active Substance: BICALUTAMIDE
  6. PANTOPRAZOLE SODIUM [Concomitant]
     Active Substance: PANTOPRAZOLE SODIUM
  7. ROSUVASTATIN [Concomitant]
     Active Substance: ROSUVASTATIN
  8. ALLOPURINOL [Concomitant]
     Active Substance: ALLOPURINOL
  9. METOPROLOL [Concomitant]
     Active Substance: METOPROLOL
  10. APIXABAN [Concomitant]
     Active Substance: APIXABAN

REACTIONS (2)
  - Cardiac failure chronic [Unknown]
  - Condition aggravated [Unknown]
